FAERS Safety Report 17860385 (Version 2)
Quarter: 2020Q2

REPORT INFORMATION
  Report Type: Report from Study
  Country: US (occurrence: US)
  Receive Date: 20200604
  Receipt Date: 20200619
  Transmission Date: 20200714
  Serious: Yes (Hospitalization)
  Sender: FDA-Public Use
  Company Number: US-EISAI MEDICAL RESEARCH-EC-2019-067406

PATIENT
  Age: 77 Year
  Sex: Female

DRUGS (5)
  1. LENVIMA [Suspect]
     Active Substance: LENVATINIB
     Indication: RENAL CELL CARCINOMA
     Route: 048
     Dates: start: 20191126, end: 20191206
  2. LENVIMA [Suspect]
     Active Substance: LENVATINIB
     Route: 048
     Dates: start: 20200419, end: 20200428
  3. LENVIMA [Suspect]
     Active Substance: LENVATINIB
     Dosage: DOSE REDUCED
     Route: 048
     Dates: start: 20191207, end: 20200323
  4. LENVIMA [Suspect]
     Active Substance: LENVATINIB
     Route: 048
     Dates: start: 20200612
  5. AFINITOR [Suspect]
     Active Substance: EVEROLIMUS
     Indication: RENAL CANCER
     Dosage: DOSE AND FREQUENCY UNKNOWN
     Route: 048

REACTIONS (24)
  - Dry mouth [Not Recovered/Not Resolved]
  - Blood triglycerides increased [Unknown]
  - Abdominal distension [Not Recovered/Not Resolved]
  - Low density lipoprotein increased [Not Recovered/Not Resolved]
  - Blood pressure systolic abnormal [Recovered/Resolved]
  - Arthralgia [Unknown]
  - Faeces soft [Unknown]
  - Glossodynia [Not Recovered/Not Resolved]
  - Onychomadesis [Not Recovered/Not Resolved]
  - Tremor [Unknown]
  - Mucosal inflammation [Unknown]
  - Blood cholesterol increased [Unknown]
  - Diarrhoea [Not Recovered/Not Resolved]
  - Fatigue [Unknown]
  - Dizziness [Recovered/Resolved]
  - Atrial fibrillation [Recovered/Resolved]
  - Onychoclasis [Not Recovered/Not Resolved]
  - Asthenia [Unknown]
  - Diarrhoea [Unknown]
  - Blood pressure increased [Recovered/Resolved]
  - Gastrointestinal disorder [Recovering/Resolving]
  - Peripheral swelling [Recovered/Resolved]
  - Proteinuria [Recovering/Resolving]
  - Defaecation urgency [Unknown]

NARRATIVE: CASE EVENT DATE: 2019
